FAERS Safety Report 24271651 (Version 1)
Quarter: 2024Q3

REPORT INFORMATION
  Report Type: Report from Study
  Country: US (occurrence: US)
  Receive Date: 20240902
  Receipt Date: 20240902
  Transmission Date: 20241017
  Serious: Yes (Other)
  Sender: ABBVIE
  Company Number: US-ABBVIE-5798194

PATIENT
  Sex: Female

DRUGS (1)
  1. IMBRUVICA [Suspect]
     Active Substance: IBRUTINIB
     Indication: B-cell small lymphocytic lymphoma
     Route: 048
     Dates: start: 20180101

REACTIONS (9)
  - Hand fracture [Unknown]
  - Multiple allergies [Not Recovered/Not Resolved]
  - Back pain [Unknown]
  - Arthritis [Not Recovered/Not Resolved]
  - Grip strength decreased [Unknown]
  - Peripheral swelling [Unknown]
  - Fall [Unknown]
  - Pain in extremity [Unknown]
  - Drug ineffective [Unknown]

NARRATIVE: CASE EVENT DATE: 20180101
